FAERS Safety Report 13284573 (Version 3)
Quarter: 2017Q1

REPORT INFORMATION
  Report Type: Spontaneous
  Country: US (occurrence: US)
  Receive Date: 20170301
  Receipt Date: 20170331
  Transmission Date: 20170428
  Serious: No
  Sender: FDA-Public Use
  Company Number: US-009507513-1702USA009837

PATIENT
  Sex: Female
  Weight: 83.9 kg

DRUGS (1)
  1. NEXPLANON [Suspect]
     Active Substance: ETONOGESTREL
     Indication: CONTRACEPTION
     Dosage: 1 DF/3 YEARS
     Route: 059
     Dates: start: 20160519

REACTIONS (8)
  - Device difficult to use [Not Recovered/Not Resolved]
  - Implant site pain [Recovered/Resolved]
  - Pain [Recovered/Resolved]
  - Device deployment issue [Unknown]
  - Device breakage [Unknown]
  - Implant site fibrosis [Unknown]
  - Migration of implanted drug [Unknown]
  - Complication associated with device [Unknown]
